FAERS Safety Report 7500520-7 (Version None)
Quarter: 2011Q2

REPORT INFORMATION
  Report Type: 
  Country: None (occurrence: None)
  Receive Date: 20110524
  Receipt Date: 20110517
  Transmission Date: 20111010
  Serious: No
  Sender: FDA-Public Use
  Company Number: US-PFIZER INC-2011106579

PATIENT
  Age: 84 Year
  Sex: Female

DRUGS (1)
  1. DEPO-ESTRADIOL [Suspect]
     Dosage: UNK

REACTIONS (1)
  - BREAST PAIN [None]
